FAERS Safety Report 4663453-X (Version None)
Quarter: 2005Q2

REPORT INFORMATION
  Report Type: 
  Country: None (occurrence: None)
  Receive Date: 20050513
  Receipt Date: 20050504
  Transmission Date: 20051028
  Serious: Yes (Other)
  Sender: FDA-Public Use
  Company Number: 2005070566

PATIENT
  Age: 74 Year
  Sex: Female
  Weight: 77.1115 kg

DRUGS (4)
  1. LIPITOR [Suspect]
     Indication: BLOOD CHOLESTEROL INCREASED
     Dosage: 10 MG (10 MG, 1 IN 1 D), ORAL
     Route: 048
     Dates: start: 20040101
  2. CELEBREX [Suspect]
     Indication: PAIN
     Dosage: 200 MG (200 MG, 1 IN 1 D), ORAL
     Route: 048
  3. CARVEDILOL [Concomitant]
  4. IRBESARTAN [Concomitant]

REACTIONS (6)
  - ALOPECIA [None]
  - BLOOD CHOLESTEROL INCREASED [None]
  - INTRACRANIAL ANEURYSM [None]
  - POST PROCEDURAL COMPLICATION [None]
  - RENAL ANEURYSM [None]
  - SPLENIC ARTERY ANEURYSM [None]
